FAERS Safety Report 19645348 (Version 5)
Quarter: 2022Q1

REPORT INFORMATION
  Report Type: Spontaneous
  Country: US (occurrence: US)
  Receive Date: 20210802
  Receipt Date: 20220216
  Transmission Date: 20220423
  Serious: No
  Sender: FDA-Public Use
  Company Number: NVSC2021US173585

PATIENT
  Sex: Female

DRUGS (1)
  1. MAYZENT [Suspect]
     Active Substance: SIPONIMOD
     Indication: Multiple sclerosis relapse
     Dosage: 2 MG, QD
     Route: 048

REACTIONS (8)
  - Sensory disturbance [Unknown]
  - Musculoskeletal stiffness [Unknown]
  - Hot flush [Unknown]
  - Sleep disorder [Unknown]
  - Amenorrhoea [Unknown]
  - Weight decreased [Unknown]
  - Fatigue [Unknown]
  - Headache [Unknown]
